FAERS Safety Report 4417047-1 (Version None)
Quarter: 2004Q2

REPORT INFORMATION
  Report Type: 
  Country: None (occurrence: None)
  Receive Date: 20040629
  Receipt Date: 20040225
  Transmission Date: 20050107
  Serious: No
  Sender: FDA-Public Use
  Company Number: US063113

PATIENT
  Age: 55 Year
  Sex: Female

DRUGS (12)
  1. ARANESP [Suspect]
     Indication: ANAEMIA
     Dosage: 200 MCG, 1 IN 2 DAYS, SC
     Route: 058
     Dates: start: 20030318, end: 20031216
  2. METOPROLOL [Concomitant]
  3. HYDROXYCARBAMIDE [Concomitant]
  4. SHOHL'S SOLUTION [Concomitant]
  5. HYDROXYZINE HCL [Concomitant]
  6. ALENDRONATE SODIUM [Concomitant]
  7. CALCIUM CARBONATE [Concomitant]
  8. LANSOPRAZOLE [Concomitant]
  9. CLOPIDOGREL BISULFATE [Concomitant]
  10. ASPIRIN [Concomitant]
  11. LISINOPRIL [Concomitant]
  12. DEFEROXAMINE MESILATE [Concomitant]

REACTIONS (2)
  - BONE PAIN [None]
  - BURNING SENSATION [None]
